FAERS Safety Report 11031862 (Version 3)
Quarter: 2015Q4

REPORT INFORMATION
  Report Type: Spontaneous
  Country: US (occurrence: US)
  Receive Date: 20150415
  Receipt Date: 20151015
  Transmission Date: 20160304
  Serious: Yes (Hospitalization, Other)
  Sender: FDA-Public Use
  Company Number: US-009507513-1107USA01498

PATIENT
  Sex: Male

DRUGS (4)
  1. FINASTERIDE. [Suspect]
     Active Substance: FINASTERIDE
     Indication: PROSTATOMEGALY
     Dosage: 5 MG, UNKNOWN
     Route: 048
     Dates: start: 201405
  2. ADVAIR HFA [Concomitant]
     Active Substance: FLUTICASONE PROPIONATE\SALMETEROL XINAFOATE
     Indication: ASTHMA
     Route: 055
  3. PROPECIA [Suspect]
     Active Substance: FINASTERIDE
     Indication: ANDROGENETIC ALOPECIA
     Dosage: 1 MG, QD
     Route: 048
     Dates: start: 20071221, end: 201103
  4. FENOFIBRATE. [Concomitant]
     Active Substance: FENOFIBRATE
     Indication: PRODUCT USED FOR UNKNOWN INDICATION
     Dosage: UNK MG, UNK
     Route: 048

REACTIONS (13)
  - Corticosteroid binding globulin decreased [Unknown]
  - Erectile dysfunction [Not Recovered/Not Resolved]
  - Penis injury [Not Recovered/Not Resolved]
  - Penile size reduced [Unknown]
  - Ejaculation disorder [Unknown]
  - Hormone level abnormal [Not Recovered/Not Resolved]
  - Endocrine disorder [Not Recovered/Not Resolved]
  - Male sexual dysfunction [Not Recovered/Not Resolved]
  - Loss of libido [Unknown]
  - Brain injury [Not Recovered/Not Resolved]
  - Blood testosterone decreased [Unknown]
  - Prostatomegaly [Unknown]
  - Depression [Unknown]

NARRATIVE: CASE EVENT DATE: 200804
